FAERS Safety Report 21348265 (Version 1)
Quarter: 2022Q3

REPORT INFORMATION
  Report Type: Spontaneous
  Country: US (occurrence: US)
  Receive Date: 20220919
  Receipt Date: 20220919
  Transmission Date: 20221027
  Serious: Yes (Other)
  Sender: FDA-Public Use
  Company Number: US-BRISTOL-MYERS SQUIBB COMPANY-2022-106504

PATIENT
  Age: 58 Year
  Sex: Female

DRUGS (1)
  1. ORENCIA [Suspect]
     Active Substance: ABATACEPT
     Indication: Product used for unknown indication
     Dosage: INJECT 125 MG (1 SYRINGE) ONCE A WEEK
     Route: 058

REACTIONS (6)
  - COVID-19 [Unknown]
  - Cystitis [Unknown]
  - Thrombosis [Unknown]
  - Depression [Unknown]
  - Swelling [Unknown]
  - Pain [Unknown]
